FAERS Safety Report 16718152 (Version 1)
Quarter: 2019Q3

REPORT INFORMATION
  Report Type: Spontaneous
  Country: IN (occurrence: IN)
  Receive Date: 20190819
  Receipt Date: 20190819
  Transmission Date: 20191005
  Serious: Yes (Hospitalization, Other)
  Sender: FDA-Public Use
  Company Number: IN-ALEMBIC PHARMACUETICALS LIMITED-2019SCAL000537

PATIENT

DRUGS (1)
  1. LITHIUM CARBONATE. [Suspect]
     Active Substance: LITHIUM CARBONATE
     Indication: BIPOLAR DISORDER
     Dosage: 1200 MILLIGRAM, QD

REACTIONS (17)
  - Systolic dysfunction [Recovered/Resolved]
  - Coma scale abnormal [Recovered/Resolved]
  - Agitation [Recovered/Resolved]
  - Respiratory failure [Recovered/Resolved]
  - Abdominal distension [Recovered/Resolved]
  - Ejection fraction decreased [Recovered/Resolved]
  - Depressed level of consciousness [Recovering/Resolving]
  - Electrocardiogram QT prolonged [Recovered/Resolved]
  - Hypovolaemia [Recovered/Resolved]
  - Cardiotoxicity [Recovered/Resolved]
  - Toxicity to various agents [Recovered/Resolved]
  - Acute kidney injury [Recovered/Resolved]
  - Hypoxia [Recovered/Resolved]
  - Partial seizures [Recovered/Resolved]
  - Hypotension [Recovered/Resolved]
  - Decreased appetite [Recovered/Resolved]
  - Dehydration [Recovered/Resolved]
